FAERS Safety Report 7484183-5 (Version None)
Quarter: 2011Q2

REPORT INFORMATION
  Report Type: 
  Country: None (occurrence: None)
  Receive Date: 20110517
  Receipt Date: 20110513
  Transmission Date: 20111010
  Serious: Yes (Disabling)
  Sender: FDA-Public Use
  Company Number: DE-SANOFI-AVENTIS-2011SA024145

PATIENT
  Age: 63 Year
  Sex: Male
  Weight: 78 kg

DRUGS (7)
  1. MARCUMAR [Concomitant]
     Route: 048
  2. TAMSULOSIN HCL [Concomitant]
     Route: 048
  3. MULTAQ [Suspect]
     Route: 048
     Dates: start: 20110404, end: 20110427
  4. SERETIDE [Concomitant]
     Indication: ASTHMA
     Route: 055
  5. BERODUAL [Concomitant]
     Route: 065
  6. EUTHYROX [Concomitant]
     Indication: HYPOTHYROIDISM
     Route: 048
  7. RAMILICH COMP [Concomitant]
     Indication: HYPERTENSION
     Route: 048

REACTIONS (2)
  - MIGRAINE WITH AURA [None]
  - CONDITION AGGRAVATED [None]
